FAERS Safety Report 14876970 (Version 2)
Quarter: 2018Q4

REPORT INFORMATION
  Report Type: Spontaneous
  Country: JP (occurrence: JP)
  Receive Date: 20180510
  Receipt Date: 20181109
  Transmission Date: 20190204
  Serious: Yes (Death, Hospitalization)
  Sender: FDA-Public Use
  Company Number: JP-EISAI MEDICAL RESEARCH-EC-2018-038615

PATIENT
  Age: 84 Year
  Sex: Male
  Weight: 65 kg

DRUGS (2)
  1. LENVIMA [Suspect]
     Active Substance: LENVATINIB
     Route: 048
     Dates: start: 20180419, end: 20180428
  2. LENVIMA [Suspect]
     Active Substance: LENVATINIB
     Indication: HEPATOCELLULAR CARCINOMA
     Route: 048
     Dates: start: 20180411, end: 20180418

REACTIONS (5)
  - Renal impairment [Recovering/Resolving]
  - Decreased appetite [Unknown]
  - Intestinal ischaemia [Fatal]
  - Ascites [Not Recovered/Not Resolved]
  - Meningitis bacterial [Fatal]

NARRATIVE: CASE EVENT DATE: 20180418
